FAERS Safety Report 9294055 (Version 1)
Quarter: 2013Q1

REPORT INFORMATION
  Report Type: Spontaneous
  Country: US (occurrence: None)
  Receive Date: 20121218
  Receipt Date: 20121218
  Transmission Date: 20140127
  Serious: Yes (Other)
  Sender: FDA-Public Use
  Company Number: 1000025190

PATIENT
  Sex: Female

DRUGS (5)
  1. LEVOTHROID [Suspect]
     Indication: HORMONE REPLACEMENT THERAPY
     Dosage: (125 MG, 1 IN 1 D)
     Route: 048
  2. LISINOPRIL (LISINOPRIL) (LISINOPRIL) [Concomitant]
  3. METOPROLOL (METOPROLOL) [Concomitant]
  4. HYDRALAZINE (HYDRALAZINE) (HYDRALAZINE) [Concomitant]
  5. CYTOMEL (LIOTHYRONINE SODIUM) [Concomitant]

REACTIONS (1)
  - Blood pressure increased [None]
